FAERS Safety Report 4911825-8 (Version None)
Quarter: 2006Q1

REPORT INFORMATION
  Report Type: 
  Country: None (occurrence: None)
  Receive Date: 20060215
  Receipt Date: 20060208
  Transmission Date: 20060701
  Serious: Yes (Other)
  Sender: FDA-Public Use
  Company Number: 2006UW02166

PATIENT
  Age: 80 Year
  Sex: Male
  Weight: 68.9 kg

DRUGS (6)
  1. SEROQUEL [Suspect]
     Indication: DEPRESSION
     Route: 048
     Dates: start: 20051001
  2. TOPROL-XL [Concomitant]
  3. PROZAC [Concomitant]
  4. NORVASC [Concomitant]
  5. ACIPHEX [Concomitant]
  6. ALTACE [Concomitant]

REACTIONS (2)
  - BLINDNESS UNILATERAL [None]
  - VISUAL DISTURBANCE [None]
